FAERS Safety Report 5971040-6 (Version None)
Quarter: 2008Q4

REPORT INFORMATION
  Report Type: 
  Country: None (occurrence: None)
  Receive Date: 20081128
  Receipt Date: 20081119
  Transmission Date: 20090506
  Serious: Yes (Hospitalization)
  Sender: FDA-Public Use
  Company Number: PHHY2008GB29359

PATIENT
  Age: 12 Year
  Sex: Male

DRUGS (2)
  1. TEGRETOL [Suspect]
     Route: 048
  2. EPILIM [Concomitant]
     Dosage: 400 MG, UNK
     Route: 048
     Dates: start: 20060101

REACTIONS (3)
  - ABNORMAL BEHAVIOUR [None]
  - AGGRESSION [None]
  - SUICIDAL IDEATION [None]
